FAERS Safety Report 4608464-5 (Version None)
Quarter: 2005Q1

REPORT INFORMATION
  Report Type: 
  Country: None (occurrence: None)
  Receive Date: 20050315
  Receipt Date: 20040226
  Transmission Date: 20050727
  Serious: Yes (Hospitalization)
  Sender: FDA-Public Use
  Company Number: DE-ABBOTT-04P-062-0251788-00

PATIENT
  Sex: Male
  Weight: 112 kg

DRUGS (3)
  1. REDUCTIL 10MG [Suspect]
     Indication: OBESITY
     Route: 048
     Dates: start: 20030701, end: 20030901
  2. PENICILLIN [Concomitant]
     Indication: TOOTH INFECTION
     Dates: start: 20031101, end: 20031101
  3. PREDNISONE [Concomitant]
     Indication: DRUG USE FOR UNKNOWN INDICATION
     Dates: start: 20031209

REACTIONS (14)
  - ABDOMINAL PAIN UPPER [None]
  - ANOREXIA [None]
  - BLOOD CREATININE INCREASED [None]
  - DIARRHOEA [None]
  - GLOMERULONEPHRITIS [None]
  - HYPERHIDROSIS [None]
  - NEPHRITIS INTERSTITIAL [None]
  - PRODUCTIVE COUGH [None]
  - PYREXIA [None]
  - RENAL PAIN [None]
  - TOOTH INFECTION [None]
  - URINARY INCONTINENCE [None]
  - VOMITING [None]
  - WEIGHT DECREASED [None]
